FAERS Safety Report 15438340 (Version 2)
Quarter: 2023Q2

REPORT INFORMATION
  Report Type: Spontaneous
  Country: US (occurrence: US)
  Receive Date: 20180928
  Receipt Date: 20230524
  Transmission Date: 20230722
  Serious: No
  Sender: FDA-Public Use
  Company Number: US-BION-006941

PATIENT
  Sex: Male

DRUGS (1)
  1. MOTRIN IB MIGRAINE [Suspect]
     Active Substance: IBUPROFEN
     Indication: Migraine

REACTIONS (1)
  - Therapeutic product effect delayed [Not Recovered/Not Resolved]
